FAERS Safety Report 8185787-7 (Version None)
Quarter: 2012Q1

REPORT INFORMATION
  Report Type: 
  Country: None (occurrence: None)
  Receive Date: 20120305
  Receipt Date: 20120224
  Transmission Date: 20120608
  Serious: Yes (Hospitalization)
  Sender: FDA-Public Use
  Company Number: US-ASTRAZENECA-2012SE13269

PATIENT
  Age: 803 Month
  Sex: Female
  Weight: 79.8 kg

DRUGS (8)
  1. ESCITALOPRAM OXALATE [Concomitant]
  2. ENTOCORT EC [Suspect]
     Indication: ABDOMINAL PAIN
     Route: 048
     Dates: start: 20110601, end: 20110601
  3. HUMIRA [Suspect]
     Indication: CROHN'S DISEASE
     Dosage: 40 MG/ 0.8 ML, 1 IN 2 WEEKS
     Route: 058
     Dates: start: 20110501, end: 20120202
  4. HYDROCHLOROTHIAZIDE [Concomitant]
     Indication: FLUID RETENTION
  5. TROSPIUM CHLORIDE [Concomitant]
     Indication: HORMONE REPLACEMENT THERAPY
  6. QUINAPRIL HYDROCHLORIDE [Concomitant]
     Indication: HYPERTENSION
  7. ESTRATEST H.S. [Concomitant]
     Indication: HORMONE REPLACEMENT THERAPY
  8. BUPROPION HCL [Concomitant]

REACTIONS (2)
  - MALAISE [None]
  - DIVERTICULUM [None]
